FAERS Safety Report 9096392 (Version 1)
Quarter: 2013Q1

REPORT INFORMATION
  Report Type: Spontaneous
  Country: US (occurrence: None)
  Receive Date: 20130124
  Receipt Date: 20130124
  Transmission Date: 20140127
  Serious: Yes (Death)
  Sender: FDA-Public Use
  Company Number: 2013SP000332

PATIENT
  Age: 64 Year
  Sex: Female

DRUGS (21)
  1. DILTIAZEM HYDROCHLORIDE [Suspect]
  2. NAPROXEN [Suspect]
  3. DICLOFENAC SODIUM [Suspect]
  4. CIPROFLOXACIN [Suspect]
  5. DESIPRAMINE [Suspect]
  6. VENLAFAXINE [Suspect]
  7. LAMOTRIGINE [Suspect]
  8. HYDROCHLOROTHIAZIDE [Suspect]
  9. ARMODAFINIL [Suspect]
  10. POTASSIUM CHLORIDE [Suspect]
  11. TRIFLUOPERAZINE [Suspect]
  12. ESCITALOPRAM [Suspect]
  13. PANTOPRAZOLE [Suspect]
  14. LANSOPRAZOLE [Suspect]
  15. ROSUVASTATIN [Suspect]
  16. NITROFURANTOIN [Suspect]
  17. ACETAMINOPHEN [Suspect]
  18. HYDROCODONE [Suspect]
  19. PROPOXYPHENE [Suspect]
  20. PROGESTERONE [Suspect]
  21. SOLIFENACIN [Suspect]

REACTIONS (2)
  - Toxicity to various agents [None]
  - Completed suicide [None]
